FAERS Safety Report 10271222 (Version 2)
Quarter: 2014Q3

REPORT INFORMATION
  Report Type: Spontaneous
  Country: CA (occurrence: CA)
  Receive Date: 20140701
  Receipt Date: 20140701
  Transmission Date: 20150326
  Serious: Yes (Other)
  Sender: FDA-Public Use
  Company Number: CA-ELI_LILLY_AND_COMPANY-CA201403005053

PATIENT
  Age: 70 Year
  Sex: Female
  Weight: 122 kg

DRUGS (2)
  1. CYMBALTA [Suspect]
     Active Substance: DULOXETINE HYDROCHLORIDE
     Indication: OSTEOARTHRITIS
     Dosage: 30 MG, QD
     Route: 048
     Dates: start: 20140109, end: 20140117
  2. VIMOVO [Concomitant]
     Active Substance: ESOMEPRAZOLE MAGNESIUM\NAPROXEN
     Dosage: 500 MG, QD
     Route: 065

REACTIONS (5)
  - Dyspnoea exertional [Recovered/Resolved]
  - Dizziness exertional [Recovered/Resolved]
  - Palpitations [Recovered/Resolved]
  - Heart rate increased [Recovered/Resolved]
  - Subvalvular aortic stenosis [Unknown]

NARRATIVE: CASE EVENT DATE: 20140117
